FAERS Safety Report 9635484 (Version 1)
Quarter: 2013Q4

REPORT INFORMATION
  Report Type: Spontaneous
  Country: US (occurrence: US)
  Receive Date: 20131021
  Receipt Date: 20131021
  Transmission Date: 20140711
  Serious: Yes (Other)
  Sender: FDA-Public Use
  Company Number: US-BAYER-2013-124856

PATIENT
  Age: 64 Year
  Sex: Female
  Weight: 81.63 kg

DRUGS (3)
  1. ALEVE CAPLET [Suspect]
     Dosage: 1 DF, PRN
     Route: 048
     Dates: start: 20131001, end: 20131002
  2. ASPIRIN\CHLORPHENIRAMINE MALEATE\PHENYLPROPANOLAMINE [Suspect]
     Indication: RHINORRHOEA
     Dosage: 2 DF, PRN
     Route: 048
     Dates: start: 2009, end: 20131007
  3. CALCIUM [Concomitant]

REACTIONS (5)
  - Gingival abscess [Not Recovered/Not Resolved]
  - Bone swelling [Not Recovered/Not Resolved]
  - Blood pressure increased [Recovered/Resolved]
  - Dizziness [Recovered/Resolved]
  - Pain [Not Recovered/Not Resolved]
